FAERS Safety Report 23891067 (Version 1)
Quarter: 2024Q2

REPORT INFORMATION
  Report Type: Spontaneous
  Country: US (occurrence: US)
  Receive Date: 20240523
  Receipt Date: 20240523
  Transmission Date: 20240716
  Serious: Yes (Other)
  Sender: FDA-Public Use
  Company Number: US-ABBVIE-5771186

PATIENT
  Age: 72 Year
  Sex: Female

DRUGS (2)
  1. SKYRIZI [Suspect]
     Active Substance: RISANKIZUMAB-RZAA
     Indication: Psoriasis
     Route: 058
     Dates: start: 20221027
  2. TYLENOL [Concomitant]
     Active Substance: ACETAMINOPHEN
     Indication: Arthralgia

REACTIONS (11)
  - Arterial occlusive disease [Unknown]
  - Immune system disorder [Unknown]
  - Psoriatic arthropathy [Not Recovered/Not Resolved]
  - Cerebrovascular accident [Unknown]
  - Unresponsive to stimuli [Unknown]
  - Balance disorder [Unknown]
  - Pain of skin [Unknown]
  - Rash [Unknown]
  - Feeling abnormal [Unknown]
  - Candida infection [Unknown]
  - Cardiac pacemaker insertion [Unknown]

NARRATIVE: CASE EVENT DATE: 20221027
